FAERS Safety Report 7266685-X (Version None)
Quarter: 2011Q1

REPORT INFORMATION
  Report Type: 
  Country: None (occurrence: None)
  Receive Date: 20110201
  Receipt Date: 20110120
  Transmission Date: 20110831
  Serious: Yes (Hospitalization)
  Sender: FDA-Public Use
  Company Number: DE-BIOGENIDEC-2011BI002334

PATIENT
  Age: 39 Year
  Sex: Female
  Weight: 55 kg

DRUGS (5)
  1. TYSABRI [Suspect]
     Indication: MULTIPLE SCLEROSIS
     Route: 042
     Dates: start: 20070711, end: 20101214
  2. TRIMIPRAMINE MALEATE [Concomitant]
     Indication: DEPRESSION
     Route: 048
     Dates: start: 20091111
  3. LEVOTHYROXINE SODIUM [Concomitant]
     Route: 048
     Dates: start: 20011110
  4. LAMOTRIGINE [Concomitant]
     Indication: EPILEPSY
     Route: 048
     Dates: start: 20050715
  5. CITALOPRAM HYDROBROMIDE [Concomitant]
     Indication: DEPRESSION
     Route: 048
     Dates: start: 20060414

REACTIONS (1)
  - GASTROINTESTINAL DISORDER POSTOPERATIVE [None]
